FAERS Safety Report 21518778 (Version 1)
Quarter: 2022Q4

REPORT INFORMATION
  Report Type: Spontaneous
  Country: IT (occurrence: IT)
  Receive Date: 20221028
  Receipt Date: 20221028
  Transmission Date: 20230113
  Serious: Yes (Other)
  Sender: FDA-Public Use
  Company Number: IT-CELLTRION INC.-2022IT017609

PATIENT

DRUGS (12)
  1. RITUXIMAB [Suspect]
     Active Substance: RITUXIMAB
     Indication: Hairy cell leukaemia
  2. VEMURAFENIB [Suspect]
     Active Substance: VEMURAFENIB
     Indication: Hairy cell leukaemia
     Dosage: UNK
  3. PEGINTERFERON ALFA-2A [Suspect]
     Active Substance: PEGINTERFERON ALFA-2A
     Indication: Hairy cell leukaemia
     Dosage: 135 MCG, EVERY 1 WEEK
  4. LINEZOLID [Concomitant]
     Active Substance: LINEZOLID
  5. MOXIFLOXACIN HYDROCHLORIDE [Concomitant]
     Active Substance: MOXIFLOXACIN HYDROCHLORIDE
  6. IMIPENEM [Concomitant]
     Active Substance: IMIPENEM
  7. AMIKACIN [Concomitant]
     Active Substance: AMIKACIN
  8. METHYLPREDNISOLONE [Concomitant]
     Active Substance: METHYLPREDNISOLONE
     Dosage: 20 MG IV/PO QD
  9. AZITHROMYCIN [Concomitant]
     Active Substance: AZITHROMYCIN
  10. PREDNISONE [Concomitant]
     Active Substance: PREDNISONE
     Dosage: 20 MG IV/PO QD
  11. TIGECYCLINE [Concomitant]
     Active Substance: TIGECYCLINE
  12. CLOFAZIMINE [Concomitant]
     Active Substance: CLOFAZIMINE

REACTIONS (5)
  - Electrocardiogram QT prolonged [Unknown]
  - Infusion related reaction [Unknown]
  - Skin reaction [Unknown]
  - Off label use [Unknown]
  - Off label use [Unknown]
